FAERS Safety Report 7650919-3 (Version None)
Quarter: 2011Q3

REPORT INFORMATION
  Report Type: 
  Country: None (occurrence: None)
  Receive Date: 20110802
  Receipt Date: 20110727
  Transmission Date: 20111222
  Serious: Yes (Hospitalization, Disabling, Other)
  Sender: FDA-Public Use
  Company Number: US-AMGEN-USASP2011036588

PATIENT
  Age: 96 Year
  Sex: Female
  Weight: 70 kg

DRUGS (2)
  1. NPLATE [Suspect]
     Indication: IDIOPATHIC THROMBOCYTOPENIC PURPURA
     Dosage: 100 A?G/KG, UNK
     Route: 058
     Dates: start: 20100330
  2. CORTICOSTEROIDS [Concomitant]

REACTIONS (4)
  - REHABILITATION THERAPY [None]
  - ATRIAL FIBRILLATION [None]
  - PLATELET COUNT DECREASED [None]
  - URINARY TRACT INFECTION [None]
